FAERS Safety Report 6839033-4 (Version None)
Quarter: 2010Q3

REPORT INFORMATION
  Report Type: 
  Country: None (occurrence: None)
  Receive Date: 20100714
  Receipt Date: 20100309
  Transmission Date: 20110219
  Serious: Yes (Hospitalization, Other)
  Sender: FDA-Public Use
  Company Number: US-ASTRAZENECA-2007UW16998

PATIENT
  Age: 11426 Day
  Sex: Female
  Weight: 112.9 kg

DRUGS (17)
  1. SEROQUEL [Suspect]
     Indication: BIPOLAR DISORDER
     Dosage: 200-450 MG DAILY
     Route: 048
     Dates: start: 20021114
  2. SEROQUEL [Suspect]
     Route: 048
     Dates: start: 20030101, end: 20060301
  3. SEROQUEL [Suspect]
     Route: 048
     Dates: start: 20021204
  4. GEODON [Concomitant]
  5. THORAZINE [Concomitant]
  6. LITHIUM [Concomitant]
     Dates: start: 20070201
  7. TRAZODONE HCL [Concomitant]
  8. XANAX [Concomitant]
  9. METFORMIN [Concomitant]
     Route: 048
  10. LANTUS [Concomitant]
     Dosage: 15-25 UNITS EVERY DAY
  11. LAMICTAL [Concomitant]
  12. OXYCODONE HCL AND ACETAMINOPHEN [Concomitant]
     Dosage: OXYCODONE 5-7.5 MG, PARACETAMOL 325-500 MG, EVERY DAY
     Route: 065
  13. NORVASC [Concomitant]
  14. EFFEXOR [Concomitant]
  15. ESTRACE [Concomitant]
  16. ALPRAZOLAM [Concomitant]
     Dates: start: 20021204
  17. LITHOBID [Concomitant]
     Dates: start: 20030131

REACTIONS (8)
  - DIABETES MELLITUS [None]
  - DIABETES MELLITUS INADEQUATE CONTROL [None]
  - DIABETIC EYE DISEASE [None]
  - MEMORY IMPAIRMENT [None]
  - OBESITY [None]
  - TYPE 1 DIABETES MELLITUS [None]
  - TYPE 2 DIABETES MELLITUS [None]
  - UTERINE DISORDER [None]
